FAERS Safety Report 22344422 (Version 1)
Quarter: 2023Q2

REPORT INFORMATION
  Report Type: Spontaneous
  Country: FR (occurrence: FR)
  Receive Date: 20230519
  Receipt Date: 20230519
  Transmission Date: 20230721
  Serious: Yes (Death, Other)
  Sender: FDA-Public Use
  Company Number: FR-ASTELLAS-2022US041640

PATIENT
  Age: 86 Year
  Sex: Male

DRUGS (2)
  1. XTANDI [Suspect]
     Active Substance: ENZALUTAMIDE
     Indication: Prostate cancer
     Dosage: 80 MG, ONCE DAILY (2 TABLETS PER DAY)
     Route: 048
     Dates: start: 20221119
  2. Decapeptyl [Concomitant]
     Indication: Prostate cancer
     Dosage: 11.25 MG, EVERY 3 MONTHS
     Route: 065

REACTIONS (6)
  - Death [Fatal]
  - Prostatic specific antigen increased [Unknown]
  - Off label use [Not Recovered/Not Resolved]
  - Underdose [Not Recovered/Not Resolved]
  - Wrong technique in product usage process [Not Recovered/Not Resolved]
  - Off label use [Not Recovered/Not Resolved]

NARRATIVE: CASE EVENT DATE: 20221119
